FAERS Safety Report 8912523 (Version 1)
Quarter: 2012Q4

REPORT INFORMATION
  Report Type: 
  Country: GB (occurrence: GB)
  Receive Date: 20121116
  Receipt Date: 20121116
  Transmission Date: 20130627
  Serious: Yes (Hospitalization)
  Sender: FDA-Public Use
  Company Number: IE-009507513-1210IRL012903

PATIENT
  Age: 73 Year
  Sex: Female

DRUGS (2)
  1. SIMVASTATIN [Suspect]
     Dosage: 40 mg, qd
     Route: 048
  2. FUSIDIC ACID [Interacting]
     Indication: URINARY TRACT INFECTION
     Dosage: 500 mg, tid
     Route: 048
     Dates: start: 201101

REACTIONS (6)
  - Chromaturia [Recovered/Resolved]
  - Rhabdomyolysis [Recovered/Resolved]
  - Drug interaction [Recovered/Resolved]
  - Blood creatine phosphokinase increased [Recovered/Resolved]
  - Myalgia [Recovered/Resolved]
  - Muscular weakness [Recovered/Resolved]
